FAERS Safety Report 25974379 (Version 1)
Quarter: 2025Q4

REPORT INFORMATION
  Report Type: Spontaneous
  Country: US (occurrence: None)
  Receive Date: 20251028
  Receipt Date: 20251028
  Transmission Date: 20260118
  Serious: No
  Sender: FDA-CTU
  Company Number: None

PATIENT
  Age: 19 Year
  Sex: Female

DRUGS (1)
  1. ZURZUVAE [Suspect]
     Active Substance: ZURANOLONE
     Indication: Perinatal depression
     Dosage: FREQUENCY : AT BEDTIME;?
     Route: 048

REACTIONS (6)
  - Gait disturbance [None]
  - Dysarthria [None]
  - Somnolence [None]
  - Migraine [None]
  - Time perception altered [None]
  - Fatigue [None]

NARRATIVE: CASE EVENT DATE: 20250930
